FAERS Safety Report 4427285-X (Version None)
Quarter: 2004Q3

REPORT INFORMATION
  Report Type: 
  Country: None (occurrence: None)
  Receive Date: 20040817
  Receipt Date: 20040629
  Transmission Date: 20050211
  Serious: Yes (Disabling)
  Sender: FDA-Public Use
  Company Number: 200416509GDDC

PATIENT
  Age: 48 Year
  Sex: Female
  Weight: 65 kg

DRUGS (2)
  1. METRONIDAZOLE [Suspect]
     Dosage: DOSE: UNK
     Route: 048
  2. FLUCONAZOLE [Concomitant]
     Dosage: DOSE: UNK

REACTIONS (8)
  - CHEST PAIN [None]
  - DYSURIA [None]
  - FATIGUE [None]
  - MYALGIA [None]
  - PAIN [None]
  - PALPITATIONS [None]
  - PANIC ATTACK [None]
  - WEIGHT DECREASED [None]
